FAERS Safety Report 6709092-8 (Version None)
Quarter: 2010Q2

REPORT INFORMATION
  Report Type: 
  Country: None (occurrence: None)
  Receive Date: 20100504
  Receipt Date: 20091002
  Transmission Date: 20101027
  Serious: Yes (Other)
  Sender: FDA-Public Use
  Company Number: BE-BAYER-200934561GPV

PATIENT
  Sex: Female

DRUGS (1)
  1. BETAFERON [Suspect]
     Indication: DRUG USE FOR UNKNOWN INDICATION
     Dates: start: 20080317, end: 20090301

REACTIONS (3)
  - HEPATIC FAILURE [None]
  - PANCREATIC DISORDER [None]
  - THYROID DISORDER [None]
